FAERS Safety Report 12909647 (Version 1)
Quarter: 2016Q4

REPORT INFORMATION
  Report Type: Report from Study
  Country: CA (occurrence: CA)
  Receive Date: 20161104
  Receipt Date: 20161104
  Transmission Date: 20170207
  Serious: Yes (Death, Other)
  Sender: FDA-Public Use
  Company Number: CA-AMGEN-CANSL2016153297

PATIENT
  Age: 58 Year
  Sex: Female

DRUGS (1)
  1. NEUPOGEN [Suspect]
     Active Substance: FILGRASTIM
     Indication: PRODUCT USED FOR UNKNOWN INDICATION
     Dosage: 300 MUG/ML, UNK (300 MCG/1.0 ML VIAL)
     Route: 065
     Dates: start: 20160609

REACTIONS (1)
  - Death [Fatal]

NARRATIVE: CASE EVENT DATE: 201610
